FAERS Safety Report 16483973 (Version 1)
Quarter: 2019Q3

REPORT INFORMATION
  Report Type: Spontaneous
  Country: US (occurrence: US)
  Receive Date: 20190625
  Receipt Date: 20190625
  Transmission Date: 20191004
  Serious: Yes (Other)
  Sender: FDA-Public Use
  Company Number: None

PATIENT
  Age: 78 Year
  Sex: Male

DRUGS (11)
  1. FENTANYL DIS 100 MCG/H [Concomitant]
  2. GABAPENTIN CAP 300 MG [Concomitant]
  3. ZOMETA INJ 4 MG/ 0.4 ML [Concomitant]
  4. ABIRATERONE ACETATE. [Suspect]
     Active Substance: ABIRATERONE ACETATE
     Indication: CARCINOID TUMOUR
     Route: 048
     Dates: start: 20190517
  5. ENOXAPARIN INJ 40/0.4 ML [Concomitant]
  6. OXYCODONE TAB 5 MG [Concomitant]
  7. PREDNISONE TAB 5 MG [Concomitant]
  8. HYDROCO/APAP TAB 7.5-325 [Concomitant]
  9. ZYTIGA TAB 5090 MG [Concomitant]
  10. LUPRON DEPOT INJ 22.5 MG [Concomitant]
  11. OXYBUTYNIN TAB 5 MG [Concomitant]

REACTIONS (2)
  - Product dose omission [None]
  - Surgery [None]
